FAERS Safety Report 10886895 (Version 3)
Quarter: 2015Q2

REPORT INFORMATION
  Report Type: Spontaneous
  Country: US (occurrence: US)
  Receive Date: 20150304
  Receipt Date: 20150421
  Transmission Date: 20150821
  Serious: No
  Sender: FDA-Public Use
  Company Number: US-PFIZER INC-2015073891

PATIENT
  Sex: Female

DRUGS (9)
  1. CYMBALTA [Concomitant]
     Active Substance: DULOXETINE HYDROCHLORIDE
     Indication: DEPRESSION
     Dosage: 30 MG, 1X/DAY, EVERY MORNING
     Route: 048
  2. NEXIUM [Concomitant]
     Active Substance: ESOMEPRAZOLE MAGNESIUM
     Indication: CHRONIC GASTRITIS
     Dosage: 40 MG, 1X/DAY, EVERY MORNING BEFORE BREAKFAST
  3. LORAZEPAM. [Concomitant]
     Active Substance: LORAZEPAM
     Indication: STRESS
  4. LORAZEPAM. [Concomitant]
     Active Substance: LORAZEPAM
     Indication: ABNORMAL DREAMS
     Dosage: .25 MG, 1X/DAY, EVERY NIGHT
     Route: 048
  5. CYMBALTA [Concomitant]
     Active Substance: DULOXETINE HYDROCHLORIDE
     Indication: PAIN
  6. CELEBREX [Concomitant]
     Active Substance: CELECOXIB
     Indication: STRESS
  7. LYRICA [Suspect]
     Active Substance: PREGABALIN
     Indication: PAIN
     Dosage: 75 MG, 1X/DAY
     Route: 048
  8. LORAZEPAM. [Concomitant]
     Active Substance: LORAZEPAM
     Indication: SOMNOLENCE
  9. CELEBREX [Concomitant]
     Active Substance: CELECOXIB
     Indication: PAIN
     Dosage: 200 MG, AS NEEDED

REACTIONS (1)
  - Pain [Not Recovered/Not Resolved]

NARRATIVE: CASE EVENT DATE: 201501
